FAERS Safety Report 8383807-8 (Version None)
Quarter: 2012Q2

REPORT INFORMATION
  Report Type: 
  Country: None (occurrence: None)
  Receive Date: 20120524
  Receipt Date: 20120306
  Transmission Date: 20120825
  Serious: Yes (Other)
  Sender: FDA-Public Use
  Company Number: US-ROCHE-1049463

PATIENT
  Sex: Male
  Weight: 89.892 kg

DRUGS (1)
  1. VALIUM [Suspect]
     Indication: DEPRESSION

REACTIONS (1)
  - SUICIDE ATTEMPT [None]
